FAERS Safety Report 9235473 (Version 3)
Quarter: 2014Q1

REPORT INFORMATION
  Report Type: Spontaneous
  Country: US (occurrence: None)
  Receive Date: 20121031
  Receipt Date: 20130724
  Transmission Date: 20141002
  Serious: No
  Sender: FDA-Public Use
  Company Number: PHEH2012US011656

PATIENT
  Age: 49 Year
  Sex: Female
  Weight: 86.2 kg

DRUGS (3)
  1. GILENYA [Suspect]
     Indication: MULTIPLE SCLEROSIS
     Route: 048
     Dates: start: 20120521
  2. KLONOPIN (CLONAZEPAM), 1MG [Concomitant]
  3. ALEVE (NAPROXEN SODIUM) [Concomitant]

REACTIONS (5)
  - Fatigue [None]
  - Gait disturbance [None]
  - Oedema peripheral [None]
  - Somnolence [None]
  - Oedema [None]
